FAERS Safety Report 7206511-8 (Version None)
Quarter: 2010Q4

REPORT INFORMATION
  Report Type: 
  Country: None (occurrence: None)
  Receive Date: 20101229
  Receipt Date: 20101229
  Transmission Date: 20110411
  Serious: No
  Sender: FDA-Public Use
  Company Number: None

PATIENT
  Sex: Male
  Weight: 64 kg

DRUGS (2)
  1. FLUOROURACIL [Suspect]
     Indication: RECTAL CANCER
     Dates: start: 20091101, end: 20100601
  2. OXALIPLATIN [Suspect]
     Indication: RECTAL CANCER
     Dates: start: 20100101, end: 20100601

REACTIONS (4)
  - ASPIRATION [None]
  - JOINT CONTRACTURE [None]
  - MYOPATHY [None]
  - SCLERODERMA [None]
